FAERS Safety Report 6541706-8 (Version None)
Quarter: 2010Q1

REPORT INFORMATION
  Report Type: 
  Country: None (occurrence: None)
  Receive Date: 20100119
  Receipt Date: 20100112
  Transmission Date: 20100710
  Serious: Yes (Other)
  Sender: FDA-Public Use
  Company Number: ES-WYE-G05319710

PATIENT
  Age: 74 Year
  Sex: Male
  Weight: 68 kg

DRUGS (2)
  1. TORISEL [Suspect]
     Indication: RENAL CANCER
     Dosage: UNKNOWN
     Route: 042
     Dates: start: 20090407, end: 20090813
  2. TORISEL [Suspect]
     Dosage: UNKNOWN
     Route: 042
     Dates: start: 20090909

REACTIONS (4)
  - ACUTE INTERSTITIAL PNEUMONITIS [None]
  - BLOOD CREATININE INCREASED [None]
  - CONDITION AGGRAVATED [None]
  - PROTEINURIA [None]
